FAERS Safety Report 11088112 (Version 3)
Quarter: 2015Q2

REPORT INFORMATION
  Report Type: Spontaneous
  Country: CN (occurrence: None)
  Receive Date: 20150430
  Receipt Date: 20150617
  Transmission Date: 20150821
  Serious: Yes (Other)
  Sender: FDA-Public Use
  Company Number: CN2015GSK053073

PATIENT
  Age: 47 Year
  Sex: Male
  Weight: 60 kg

DRUGS (5)
  1. SPIRONOLACTONE. [Suspect]
     Active Substance: SPIRONOLACTONE
     Indication: ASCITES
     Route: 048
     Dates: start: 201304
  2. ANETHOLTRITHION [Suspect]
     Active Substance: ANETHOLTRITHION
     Indication: HEPATITIS B
     Route: 048
     Dates: start: 201304
  3. FUROSEMIDE. [Suspect]
     Active Substance: FUROSEMIDE
     Indication: ASCITES
     Route: 048
     Dates: start: 201304
  4. ISOSORBIDE MONONITRATE. [Suspect]
     Active Substance: ISOSORBIDE MONONITRATE
     Indication: ASCITES
     Route: 048
     Dates: start: 201304
  5. HEPTODIN [Suspect]
     Active Substance: LAMIVUDINE
     Indication: HEPATITIS B
     Dosage: 1 UNK
     Route: 048
     Dates: start: 201204

REACTIONS (6)
  - Ascites [None]
  - Hepatitis B DNA increased [None]
  - Hyperthyroidism [None]
  - Platelet count decreased [None]
  - Drug resistance [None]
  - Blood albumin decreased [None]

NARRATIVE: CASE EVENT DATE: 201304
